FAERS Safety Report 7583103-2 (Version None)
Quarter: 2011Q2

REPORT INFORMATION
  Report Type: 
  Country: None (occurrence: None)
  Receive Date: 20110630
  Receipt Date: 20110617
  Transmission Date: 20111010
  Serious: Yes (Other)
  Sender: FDA-Public Use
  Company Number: CA-PURDUE-CAN-2011-0002077

PATIENT
  Sex: Male

DRUGS (2)
  1. ALCOHOL [Suspect]
     Indication: PRODUCT USED FOR UNKNOWN INDICATION
     Route: 065
  2. OXYCONTIN [Suspect]
     Indication: PRODUCT USED FOR UNKNOWN INDICATION
     Route: 065

REACTIONS (8)
  - BLOOD ALCOHOL INCREASED [None]
  - IMPAIRED DRIVING ABILITY [None]
  - SUBSTANCE ABUSE [None]
  - DYSARTHRIA [None]
  - INCOHERENT [None]
  - AGGRESSION [None]
  - AGITATION [None]
  - DRUG DEPENDENCE [None]
